FAERS Safety Report 8178207 (Version 2)
Quarter: 2013Q4

REPORT INFORMATION
  Report Type: Spontaneous
  Country: US (occurrence: US)
  Receive Date: 20111012
  Receipt Date: 20131218
  Transmission Date: 20140711
  Serious: Yes (Other)
  Sender: FDA-Public Use
  Company Number: US-ROCHE-751313

PATIENT
  Age: 15 Year
  Sex: Male
  Weight: 79.45 kg

DRUGS (1)
  1. ACCUTANE [Suspect]
     Indication: ACNE CYSTIC
     Route: 065
     Dates: start: 19990204, end: 19990609

REACTIONS (12)
  - Crohn^s disease [Unknown]
  - Inflammatory bowel disease [Unknown]
  - Stress [Unknown]
  - Depression [Unknown]
  - Bipolar disorder [Unknown]
  - Dry skin [Unknown]
  - Chapped lips [Unknown]
  - Stomatitis [Unknown]
  - Back pain [Unknown]
  - Blood triglycerides increased [Recovered/Resolved]
  - Haemorrhoids [Unknown]
  - Ear pain [Unknown]
